FAERS Safety Report 19432583 (Version 2)
Quarter: 2021Q2

REPORT INFORMATION
  Report Type: Spontaneous
  Country: US (occurrence: US)
  Receive Date: 20210617
  Receipt Date: 20210625
  Transmission Date: 20210717
  Serious: Yes (Hospitalization)
  Sender: FDA-Public Use
  Company Number: US-ALLERGAN-2122903US

PATIENT
  Sex: Male

DRUGS (2)
  1. LEXAPRO [Suspect]
     Active Substance: ESCITALOPRAM OXALATE
     Indication: PANIC ATTACK
  2. LEXAPRO [Suspect]
     Active Substance: ESCITALOPRAM OXALATE
     Indication: ANXIETY
     Dosage: UNK
     Route: 048

REACTIONS (2)
  - Vascular graft [Unknown]
  - Heart valve replacement [Unknown]

NARRATIVE: CASE EVENT DATE: 201812
